FAERS Safety Report 7030267-5 (Version None)
Quarter: 2010Q4

REPORT INFORMATION
  Report Type: 
  Country: None (occurrence: None)
  Receive Date: 20101001
  Receipt Date: 20100920
  Transmission Date: 20110411
  Serious: Yes (Hospitalization)
  Sender: FDA-Public Use
  Company Number: 2010MA002888

PATIENT
  Age: 16 Year
  Sex: Male

DRUGS (26)
  1. RISPERIDONE [Suspect]
     Indication: TOURETTE'S DISORDER
     Dosage: 5 MG;QD;PO
     Route: 048
  2. TETRABENAZINE [Suspect]
     Dosage: 37.5 MG;BID
  3. HALOPERIDOL [Suspect]
  4. PIMOZIDE [Suspect]
     Dosage: 1 MG
  5. FLUOXETINE [Suspect]
     Indication: ANXIETY
     Dosage: 30 MG;QD;PO
     Route: 048
  6. BENZTROPINE MESYLATE [Concomitant]
  7. TOPIRAMATE [Concomitant]
  8. ZOLPIDEM [Concomitant]
  9. FLUPHENAZINE [Concomitant]
  10. ZIPRASIDONE HCL [Concomitant]
  11. ARIPIPRAZOLE [Concomitant]
  12. MIDAZOLAM [Concomitant]
  13. ALPRAZOLAM [Concomitant]
  14. DIPHENHYDRAMINE HCL [Concomitant]
  15. DIAZEPAM [Concomitant]
  16. LORAZEPAM [Concomitant]
  17. FISH OIL [Concomitant]
  18. CLONAZEPAM [Concomitant]
  19. DOCUSATE SODIUM [Concomitant]
  20. METHYLPREDNISOLONE [Concomitant]
  21. RANITIDINE [Concomitant]
  22. OXCARBAZEPINE [Concomitant]
  23. LEVETIRACETAM [Concomitant]
  24. CLONIDINE [Concomitant]
  25. GUANFACINE HYDROCHLORIDE [Concomitant]
  26. OLANZAPINE [Concomitant]

REACTIONS (10)
  - ANXIETY [None]
  - BLOOD PROLACTIN INCREASED [None]
  - DEPRESSION [None]
  - DRUG INTERACTION [None]
  - ELECTROCARDIOGRAM QT PROLONGED [None]
  - LETHARGY [None]
  - MUSCULOSKELETAL STIFFNESS [None]
  - SUICIDAL IDEATION [None]
  - TIC [None]
  - WEIGHT INCREASED [None]
